FAERS Safety Report 8547638-8 (Version None)
Quarter: 2012Q3

REPORT INFORMATION
  Report Type: 
  Country: None (occurrence: None)
  Receive Date: 20120727
  Receipt Date: 20120501
  Transmission Date: 20120928
  Serious: Yes (Other)
  Sender: FDA-Public Use
  Company Number: US-ASTRAZENECA-2012SE28339

PATIENT
  Sex: Male

DRUGS (4)
  1. VALPROIC ACID [Concomitant]
  2. SEROQUEL [Suspect]
     Indication: SPINAL CORD DISORDER
     Route: 048
     Dates: start: 20020101
  3. KLONOPIN [Concomitant]
  4. TERAZOSIN HYDROCHLORIDE [Concomitant]
     Indication: PROSTATIC DISORDER

REACTIONS (6)
  - MEMORY IMPAIRMENT [None]
  - BACK PAIN [None]
  - OFF LABEL USE [None]
  - CATARACT [None]
  - JOINT INJURY [None]
  - ROAD TRAFFIC ACCIDENT [None]
